FAERS Safety Report 7534588-9 (Version None)
Quarter: 2011Q2

REPORT INFORMATION
  Report Type: 
  Country: None (occurrence: None)
  Receive Date: 20110609
  Receipt Date: 20100316
  Transmission Date: 20111010
  Serious: Yes (Hospitalization, Other)
  Sender: FDA-Public Use
  Company Number: PHHY2009DE46488

PATIENT
  Sex: Female
  Weight: 58 kg

DRUGS (15)
  1. DIFLUCAN [Concomitant]
     Indication: FUNGAL INFECTION
     Dosage: 200 MG, QD
     Route: 048
     Dates: start: 20090617, end: 20091202
  2. EPIRUBICIN [Concomitant]
     Dosage: 30 MG, UNK
     Route: 048
     Dates: start: 20090624
  3. NOVANTRONE [Concomitant]
     Dosage: 10 MG, UNK
     Route: 048
     Dates: start: 20090624, end: 20090727
  4. OMEPRAZOLE [Concomitant]
     Indication: GASTRITIS
     Dosage: 40 MG, QD
     Route: 048
  5. AMITRIPTYLINE HYDROCHLORIDE [Concomitant]
     Indication: SLEEP DISORDER
     Dosage: UNK
     Route: 048
     Dates: start: 20090617
  6. BISO [Concomitant]
     Indication: CARDIAC FAILURE
     Dosage: 2.5 MG, UNK
     Route: 048
     Dates: start: 20090101
  7. ZOMETA [Suspect]
     Indication: METASTASIS
     Dosage: 4 MG, QMO
     Route: 042
     Dates: start: 20090318
  8. HERCEPTIN [Concomitant]
     Dosage: 450 MG, Q3MO
     Dates: start: 20090112, end: 20090729
  9. MITOMYCIN [Concomitant]
     Dosage: 20 MG, TIW
     Dates: start: 20090318, end: 20090513
  10. SPIRO COMP. [Concomitant]
     Indication: PLEURAL EFFUSION
  11. DOCITON [Concomitant]
     Indication: HEPATIC CIRRHOSIS
  12. CALCIUM CARBONATE [Concomitant]
     Dosage: 1000 MG, QD
     Route: 048
  13. DOCITON [Concomitant]
     Indication: ASCITES
     Dosage: 20 MG, QD
     Route: 048
     Dates: start: 20090617
  14. FUROSEMIDE [Concomitant]
     Indication: ASCITES
     Dosage: UNK
     Route: 048
     Dates: start: 20090101
  15. SPIRO COMP. [Concomitant]
     Indication: ASCITES
     Dosage: UNK
     Route: 048
     Dates: start: 20090618

REACTIONS (13)
  - PLEURAL EFFUSION [None]
  - METASTASIS [None]
  - OESOPHAGEAL CANDIDIASIS [None]
  - HEPATIC CIRRHOSIS [None]
  - ASCITES [None]
  - NEOPLASM MALIGNANT [None]
  - MELAENA [None]
  - GASTROINTESTINAL HAEMORRHAGE [None]
  - VARICES OESOPHAGEAL [None]
  - ANAEMIA [None]
  - HEPATIC NEOPLASM [None]
  - NEOPLASM [None]
  - PORTAL HYPERTENSION [None]
